FAERS Safety Report 6967246-X (Version None)
Quarter: 2010Q3

REPORT INFORMATION
  Report Type: 
  Country: None (occurrence: None)
  Receive Date: 20100907
  Receipt Date: 20100824
  Transmission Date: 20110219
  Serious: Yes (Hospitalization)
  Sender: FDA-Public Use
  Company Number: US-ELI_LILLY_AND_COMPANY-US200912001538

PATIENT
  Age: 37 Year
  Sex: Female
  Weight: 53.515 kg

DRUGS (11)
  1. FORTEO [Suspect]
     Indication: OSTEOPOROSIS
     Dosage: 20 UG, DAILY (1/D)
     Dates: end: 20091203
  2. FORTEO [Suspect]
     Dosage: 20 UG, DAILY (1/D)
  3. PEGASYS [Concomitant]
     Indication: HEPATITIS C
     Dates: end: 20091203
  4. SOMA [Concomitant]
  5. RIBAVIRIN [Concomitant]
  6. OXYCODONE [Concomitant]
  7. ADVAIR DISKUS 100/50 [Concomitant]
  8. PROAIR HFA [Concomitant]
  9. VALIUM [Concomitant]
  10. ALBUTEROL [Concomitant]
  11. INTERFERON [Concomitant]

REACTIONS (4)
  - ANAEMIA [None]
  - ASTHENIA [None]
  - NEUTROPENIA [None]
  - PAIN [None]
